FAERS Safety Report 16038934 (Version 1)
Quarter: 2019Q1

REPORT INFORMATION
  Report Type: Spontaneous
  Country: IE (occurrence: IE)
  Receive Date: 20190306
  Receipt Date: 20190306
  Transmission Date: 20190418
  Serious: Yes (Hospitalization)
  Sender: FDA-Public Use
  Company Number: IE-AMGEN-IRLSP2019022701

PATIENT
  Age: 21 Year
  Sex: Female

DRUGS (1)
  1. ENBREL [Suspect]
     Active Substance: ETANERCEPT
     Indication: BEHCET^S SYNDROME
     Dosage: 50 MG, UNK
     Route: 058
     Dates: start: 20181103, end: 20181217

REACTIONS (6)
  - Skin burning sensation [Unknown]
  - Skin abrasion [Recovered/Resolved]
  - Injection site erythema [Recovered/Resolved]
  - Infection [Recovered/Resolved]
  - Injection site discolouration [Unknown]
  - Injection site pruritus [Recovered/Resolved]
